FAERS Safety Report 4413358-4 (Version None)
Quarter: 2004Q3

REPORT INFORMATION
  Report Type: 
  Country: None (occurrence: None)
  Receive Date: 20040729
  Receipt Date: 20040716
  Transmission Date: 20050211
  Serious: Yes (Other)
  Sender: FDA-Public Use
  Company Number: HQWYE972808AUG03

PATIENT
  Age: 31 Year
  Sex: Female
  Weight: 55.16 kg

DRUGS (13)
  1. RAPAMUNE [Suspect]
     Indication: PANCREAS TRANSPLANT
     Dosage: 5 MG 1X PER 1 DAY, ORAL
     Route: 048
     Dates: start: 20021101, end: 20030805
  2. RAPAMUNE [Suspect]
     Indication: RENAL TRANSPLANT
     Dosage: 5 MG 1X PER 1 DAY, ORAL
     Route: 048
     Dates: start: 20021101, end: 20030805
  3. CALCITROL (CALCIUM CARBONATE/ERGOCALCIFEROL/RETINOL,) [Suspect]
  4. DILANTIN [Suspect]
  5. INSULIN ILETIN I NPH (INSULIN INJECTION ISOPHANE, ) [Suspect]
  6. INSULIN ILETIN I REGULAR (INSULIN, ) [Suspect]
  7. LOPRESSOR [Suspect]
  8. NORVASC [Suspect]
  9. PREDNISONE [Suspect]
  10. PROGRAF [Suspect]
  11. UNSPECIFIED ANTIHYPERTENSIVE AGENT (UNSPECIFIED ANTIHYPERTENSIVE AGENT [Suspect]
  12. XANAX [Suspect]
  13. ZANTAC [Suspect]

REACTIONS (5)
  - CAESAREAN SECTION [None]
  - DRUG EXPOSURE DURING PREGNANCY [None]
  - PRE-ECLAMPSIA [None]
  - PREGNANCY [None]
  - PREMATURE BABY [None]
